FAERS Safety Report 23745999 (Version 2)
Quarter: 2024Q3

REPORT INFORMATION
  Report Type: Report from Study
  Country: IN (occurrence: IN)
  Receive Date: 20240416
  Receipt Date: 20240710
  Transmission Date: 20241017
  Serious: No
  Sender: ROCHE
  Company Number: IN-ROCHE-3540176

PATIENT
  Age: 55 Year
  Sex: Female

DRUGS (1)
  1. PHESGO [Suspect]
     Active Substance: HYALURONIDASE-ZZXF\PERTUZUMAB\TRASTUZUMAB
     Indication: Breast cancer
     Route: 058
     Dates: start: 20230401

REACTIONS (1)
  - Pyrexia [Unknown]
